FAERS Safety Report 25997090 (Version 1)
Quarter: 2025Q4

REPORT INFORMATION
  Report Type: Spontaneous
  Country: MX (occurrence: MX)
  Receive Date: 20251104
  Receipt Date: 20251104
  Transmission Date: 20260118
  Serious: Yes (Death, Other)
  Sender: INCYTE
  Company Number: MX-GRUPO BIOTOSCANA S.A.-2025-10-MX-01542

PATIENT

DRUGS (1)
  1. TAFASITAMAB [Suspect]
     Active Substance: TAFASITAMAB
     Indication: Diffuse large B-cell lymphoma
     Dosage: 600 MILLIGRAM ON 4 L, AS DIRECTED (DAY 1,4,8, 20 OF THE MONTH)
     Route: 065

REACTIONS (8)
  - Death [Fatal]
  - Traumatic lung injury [Fatal]
  - Drug ineffective [Fatal]
  - Disease progression [Fatal]
  - Weight decreased [Unknown]
  - Anaemia [Recovered/Resolved]
  - Fatigue [Unknown]
  - Cough [Recovered/Resolved]
